FAERS Safety Report 25009984 (Version 1)
Quarter: 2025Q1

REPORT INFORMATION
  Report Type: Spontaneous
  Country: US (occurrence: US)
  Receive Date: 20250225
  Receipt Date: 20250225
  Transmission Date: 20250409
  Serious: No
  Sender: YILING PHARMACEUTICAL LTD
  Company Number: US-YILING-2025YPSPO0002

PATIENT
  Age: 61 Year
  Sex: Female
  Weight: 116 kg

DRUGS (1)
  1. LETROZOLE [Suspect]
     Active Substance: LETROZOLE
     Indication: Breast cancer
     Route: 065
     Dates: start: 202409

REACTIONS (2)
  - Pruritus [Not Recovered/Not Resolved]
  - Product substitution issue [Unknown]

NARRATIVE: CASE EVENT DATE: 20241101
